FAERS Safety Report 22021421 (Version 1)
Quarter: 2023Q1

REPORT INFORMATION
  Report Type: Spontaneous
  Country: US (occurrence: None)
  Receive Date: 20230218
  Receipt Date: 20230218
  Transmission Date: 20230417
  Serious: Yes (Hospitalization)
  Sender: FDA-Public Use
  Company Number: None

PATIENT
  Age: 69 Year
  Sex: Female
  Weight: 83.4 kg

DRUGS (2)
  1. CYTARABINE [Suspect]
     Active Substance: CYTARABINE
     Dates: start: 20210115, end: 20210203
  2. DAUNORUBICIN [Suspect]
     Active Substance: DAUNORUBICIN
     Dates: start: 20210115, end: 20210131

REACTIONS (5)
  - Febrile neutropenia [None]
  - Device related infection [None]
  - Hypophagia [None]
  - Streptococcus test positive [None]
  - Stomatitis [None]

NARRATIVE: CASE EVENT DATE: 20210209
